FAERS Safety Report 7663036 (Version 3)
Quarter: 2013Q4

REPORT INFORMATION
  Report Type: Spontaneous
  Country: US (occurrence: US)
  Receive Date: 20101110
  Receipt Date: 20131205
  Transmission Date: 20140711
  Serious: Yes (Other)
  Sender: FDA-Public Use
  Company Number: US-BAYER-201039836NA

PATIENT
  Age: 21 Year
  Sex: Female
  Weight: 84 kg

DRUGS (3)
  1. OCELLA [Suspect]
     Indication: PREMENSTRUAL SYNDROME
     Route: 048
     Dates: start: 200901, end: 200904
  2. YAZ [Suspect]
     Indication: PREMENSTRUAL SYNDROME
     Dosage: UNK
     Dates: start: 200701, end: 200703
  3. YAZ [Suspect]
     Indication: PREMENSTRUAL SYNDROME
     Dosage: UNK
     Dates: start: 200801, end: 200802

REACTIONS (6)
  - Gallbladder disorder [None]
  - Cholecystitis chronic [None]
  - Hydrocholecystis [None]
  - Nausea [None]
  - Chest pain [None]
  - Back pain [None]
